FAERS Safety Report 24971463 (Version 2)
Quarter: 2025Q3

REPORT INFORMATION
  Report Type: Spontaneous
  Country: MA (occurrence: MA)
  Receive Date: 20250214
  Receipt Date: 20250810
  Transmission Date: 20251020
  Serious: Yes (Death, Other)
  Sender: ALEXION PHARMACEUTICALS
  Company Number: MA-AstraZeneca-CH-00803622A

PATIENT
  Sex: Female

DRUGS (1)
  1. TAGRISSO [Suspect]
     Active Substance: OSIMERTINIB
     Indication: Therapeutic procedure
     Dosage: 80 MILLIGRAM, QD
     Dates: start: 20240125, end: 20250202

REACTIONS (1)
  - Death [Fatal]
